FAERS Safety Report 8569300-8 (Version None)
Quarter: 2012Q3

REPORT INFORMATION
  Report Type: 
  Country: None (occurrence: None)
  Receive Date: 20120803
  Receipt Date: 20120604
  Transmission Date: 20120928
  Serious: No
  Sender: FDA-Public Use
  Company Number: US-ABBOTT-12P-163-0942786-00

PATIENT
  Sex: Male
  Weight: 85.352 kg

DRUGS (7)
  1. NIASPAN [Suspect]
     Indication: LIPOPROTEIN (A) INCREASED
     Dates: start: 20120501
  2. LISINOPRIL [Concomitant]
     Indication: HYPERTENSION
  3. WARFARIN SODIUM [Concomitant]
     Indication: PRODUCT USED FOR UNKNOWN INDICATION
     Dates: start: 20060101
  4. LIVALO [Concomitant]
     Indication: BLOOD CHOLESTEROL INCREASED
  5. OMEGA 2 PLUS [Concomitant]
     Indication: PRODUCT USED FOR UNKNOWN INDICATION
  6. MULTI-VITAMIN [Concomitant]
     Indication: PRODUCT USED FOR UNKNOWN INDICATION
  7. URINOZINC [Concomitant]
     Indication: POLLAKIURIA

REACTIONS (2)
  - PROTHROMBIN TIME PROLONGED [None]
  - THERAPEUTIC RESPONSE UNEXPECTED [None]
